FAERS Safety Report 25406625 (Version 1)
Quarter: 2025Q2

REPORT INFORMATION
  Report Type: Spontaneous
  Country: JP (occurrence: JP)
  Receive Date: 20250606
  Receipt Date: 20250606
  Transmission Date: 20250717
  Serious: Yes (Death, Other)
  Sender: CLINIGEN
  Company Number: JP-CLINIGEN-CLI2025000064

PATIENT

DRUGS (1)
  1. FOSCARNET SODIUM [Suspect]
     Active Substance: FOSCARNET SODIUM
     Indication: Cytomegalovirus myelomeningoradiculitis
     Route: 065

REACTIONS (1)
  - Death [Fatal]
